FAERS Safety Report 6315436-1 (Version None)
Quarter: 2009Q3

REPORT INFORMATION
  Report Type: 
  Country: None (occurrence: None)
  Receive Date: 20090819
  Receipt Date: 20090806
  Transmission Date: 20100115
  Serious: Yes (Death)
  Sender: FDA-Public Use
  Company Number: PE-PFIZER INC-2009252388

PATIENT
  Age: 76 Year

DRUGS (1)
  1. XANAX XR [Suspect]
     Indication: PANIC DISORDER
     Dates: start: 20090330

REACTIONS (1)
  - DEATH [None]
